FAERS Safety Report 9447365 (Version 1)
Quarter: 2013Q3

REPORT INFORMATION
  Report Type: Report from Study
  Country: US (occurrence: US)
  Receive Date: 20130808
  Receipt Date: 20130808
  Transmission Date: 20140515
  Serious: Yes (Hospitalization)
  Sender: FDA-Public Use
  Company Number: US-ROCHE-1258455

PATIENT
  Sex: Male

DRUGS (1)
  1. MYCOPHENOLATE MOFETIL [Suspect]
     Indication: TRANSPLANT
     Route: 048

REACTIONS (1)
  - Gastrointestinal obstruction [Unknown]
